FAERS Safety Report 10253359 (Version 2)
Quarter: 2014Q2

REPORT INFORMATION
  Report Type: Spontaneous
  Country: US (occurrence: US)
  Receive Date: 20140623
  Receipt Date: 20140623
  Transmission Date: 20141212
  Serious: No
  Sender: FDA-Public Use
  Company Number: US-SHIONOGI, INC-2014000255

PATIENT
  Sex: 0

DRUGS (2)
  1. OSPHENA [Suspect]
     Indication: VULVOVAGINAL DRYNESS
     Dosage: 60 MG, QD
     Route: 048
     Dates: start: 20140227, end: 20140308
  2. OSPHENA [Suspect]
     Indication: OFF LABEL USE

REACTIONS (5)
  - Off label use [Recovering/Resolving]
  - Headache [Recovering/Resolving]
  - Abdominal pain [Recovering/Resolving]
  - Vaginal discharge [Recovering/Resolving]
  - Hot flush [Recovering/Resolving]
